FAERS Safety Report 19491240 (Version 4)
Quarter: 2021Q3

REPORT INFORMATION
  Report Type: Other
  Country: US (occurrence: US)
  Receive Date: 20210705
  Receipt Date: 20210809
  Transmission Date: 20211014
  Serious: Yes (Other)
  Sender: FDA-Public Use
  Company Number: US-ROCHE-2494365

PATIENT
  Sex: Female
  Weight: 108.96 kg

DRUGS (33)
  1. ACTEMRA [Suspect]
     Active Substance: TOCILIZUMAB
  2. ACTEMRA [Suspect]
     Active Substance: TOCILIZUMAB
     Indication: MACULAR DEGENERATION
  3. ACTEMRA [Suspect]
     Active Substance: TOCILIZUMAB
  4. ACTEMRA [Suspect]
     Active Substance: TOCILIZUMAB
  5. ACTEMRA [Suspect]
     Active Substance: TOCILIZUMAB
  6. ACTEMRA [Suspect]
     Active Substance: TOCILIZUMAB
  7. ACTEMRA [Suspect]
     Active Substance: TOCILIZUMAB
     Indication: IRIDOCYCLITIS
  8. ACTEMRA [Suspect]
     Active Substance: TOCILIZUMAB
  9. KETOROLAC [Concomitant]
     Active Substance: KETOROLAC TROMETHAMINE
     Dosage: QID
  10. HUMIRA [Concomitant]
     Active Substance: ADALIMUMAB
     Indication: PRODUCT USED FOR UNKNOWN INDICATION
  11. TIMOLOL. [Concomitant]
     Active Substance: TIMOLOL
     Indication: PRODUCT USED FOR UNKNOWN INDICATION
     Dosage: BID OU (BOTH EYES)
     Route: 047
  12. METHOTREXATE. [Concomitant]
     Active Substance: METHOTREXATE
     Dosage: 8 TAB PO WEEKLY
     Route: 048
  13. ACTEMRA [Suspect]
     Active Substance: TOCILIZUMAB
     Indication: IRIDOCYCLITIS
     Dosage: INJECT 162 MG/ 0.9 ML SUBCUTANEOUSLY EVERY WEEK
     Route: 058
  14. ACTEMRA [Suspect]
     Active Substance: TOCILIZUMAB
  15. ACTEMRA [Suspect]
     Active Substance: TOCILIZUMAB
  16. KETOROLAC [Concomitant]
     Active Substance: KETOROLAC TROMETHAMINE
     Indication: PRODUCT USED FOR UNKNOWN INDICATION
     Dosage: QID OU (BOTH EYES)
     Route: 047
  17. ACTEMRA [Suspect]
     Active Substance: TOCILIZUMAB
  18. ACTEMRA [Suspect]
     Active Substance: TOCILIZUMAB
     Indication: SARS-COV-2 TEST POSITIVE
  19. ACTEMRA [Suspect]
     Active Substance: TOCILIZUMAB
  20. ACTEMRA [Suspect]
     Active Substance: TOCILIZUMAB
  21. ACTEMRA [Suspect]
     Active Substance: TOCILIZUMAB
     Indication: IRIDOCYCLITIS
  22. PLAQUENIL [Concomitant]
     Active Substance: HYDROXYCHLOROQUINE SULFATE
     Indication: PRODUCT USED FOR UNKNOWN INDICATION
     Dates: start: 1999
  23. ACTEMRA [Suspect]
     Active Substance: TOCILIZUMAB
     Indication: IRIDOCYCLITIS
     Route: 058
  24. ATROPINE. [Concomitant]
     Active Substance: ATROPINE
  25. ACTEMRA [Suspect]
     Active Substance: TOCILIZUMAB
     Indication: MACULAR DEGENERATION
  26. ACTEMRA [Suspect]
     Active Substance: TOCILIZUMAB
  27. ACTEMRA [Suspect]
     Active Substance: TOCILIZUMAB
     Indication: IRITIS
  28. ACTEMRA [Suspect]
     Active Substance: TOCILIZUMAB
  29. HUMIRA [Concomitant]
     Active Substance: ADALIMUMAB
     Dates: start: 2018
  30. ACTEMRA [Suspect]
     Active Substance: TOCILIZUMAB
     Indication: IRIDOCYCLITIS
     Route: 042
  31. ACTEMRA [Suspect]
     Active Substance: TOCILIZUMAB
     Indication: SARS-COV-2 TEST POSITIVE
     Route: 058
  32. ACTEMRA [Suspect]
     Active Substance: TOCILIZUMAB
  33. ATROPINE. [Concomitant]
     Active Substance: ATROPINE
     Indication: PRODUCT USED FOR UNKNOWN INDICATION
     Dosage: QD OU (BOTH EYES)
     Route: 047

REACTIONS (7)
  - Seizure [Unknown]
  - Off label use [Unknown]
  - Fall [Unknown]
  - Sleep apnoea syndrome [Unknown]
  - COVID-19 [Unknown]
  - Visual impairment [Unknown]
  - Contusion [Unknown]
